FAERS Safety Report 6447678-9 (Version None)
Quarter: 2009Q4

REPORT INFORMATION
  Report Type: 
  Country: None (occurrence: None)
  Receive Date: 20091120
  Receipt Date: 20091112
  Transmission Date: 20100525
  Serious: Yes (Hospitalization)
  Sender: FDA-Public Use
  Company Number: US-BIOGENIDEC-2009BI025561

PATIENT
  Age: 53 Year
  Sex: Female

DRUGS (1)
  1. TYSABRI [Suspect]
     Indication: MULTIPLE SCLEROSIS
     Route: 042
     Dates: start: 20090126

REACTIONS (17)
  - ANXIETY [None]
  - ARTHROPOD BITE [None]
  - ASTHENIA [None]
  - COLD SWEAT [None]
  - DEPRESSION [None]
  - FEELING HOT [None]
  - HYPERHIDROSIS [None]
  - HYPERSOMNIA [None]
  - MULTIPLE SCLEROSIS [None]
  - OVARIAN CYST [None]
  - PRECANCEROUS CELLS PRESENT [None]
  - RHEUMATOID ARTHRITIS [None]
  - SCLERITIS [None]
  - STRESS [None]
  - TENDONITIS [None]
  - THYROID DISORDER [None]
  - VISUAL ACUITY REDUCED [None]
